FAERS Safety Report 8809991 (Version 1)
Quarter: 2012Q4

REPORT INFORMATION
  Report Type: 
  Country: AU (occurrence: AU)
  Receive Date: 20120926
  Receipt Date: 20120926
  Transmission Date: 20130627
  Serious: Yes (Other)
  Sender: FDA-Public Use
  Company Number: AU-GLAXOSMITHKLINE-B0827054A

PATIENT
  Age: 61 Year
  Sex: Female

DRUGS (3)
  1. NICABATE [Suspect]
     Indication: DRUG WITHDRAWAL MAINTENANCE THERAPY
     Dosage: 1PAT per day
     Route: 062
     Dates: start: 20120823
  2. VOLTAREN [Concomitant]
  3. ZOLOFT [Concomitant]

REACTIONS (3)
  - Pancreatic carcinoma [Unknown]
  - Application site pruritus [Recovered/Resolved]
  - Breast swelling [Not Recovered/Not Resolved]
